FAERS Safety Report 25592834 (Version 2)
Quarter: 2025Q4

REPORT INFORMATION
  Report Type: Spontaneous
  Country: US (occurrence: US)
  Receive Date: 20250722
  Receipt Date: 20251103
  Transmission Date: 20260117
  Serious: No
  Sender: SANOFI AVENTIS
  Company Number: US-SA-2025SA205329

PATIENT
  Age: 12 Year
  Sex: Female

DRUGS (1)
  1. LUMIZYME [Suspect]
     Active Substance: ALGLUCOSIDASE ALFA
     Dosage: 900 MG, BIM
     Route: 042
     Dates: end: 2025

REACTIONS (2)
  - Poor venous access [Unknown]
  - Illness [Unknown]

NARRATIVE: CASE EVENT DATE: 20250101
